FAERS Safety Report 18137942 (Version 1)
Quarter: 2020Q3

REPORT INFORMATION
  Report Type: Spontaneous
  Country: US (occurrence: US)
  Receive Date: 20200812
  Receipt Date: 20200812
  Transmission Date: 20201103
  Serious: No
  Sender: FDA-Public Use
  Company Number: US-009507513-2008USA007494

PATIENT
  Age: 23 Year
  Sex: Female

DRUGS (1)
  1. NEXPLANON [Suspect]
     Active Substance: ETONOGESTREL
     Dosage: 1 IMPLANT
     Route: 059
     Dates: start: 202005

REACTIONS (7)
  - Weight decreased [Unknown]
  - Headache [Unknown]
  - Tinnitus [Unknown]
  - Decreased appetite [Unknown]
  - Fatigue [Unknown]
  - Vision blurred [Unknown]
  - Depression [Unknown]

NARRATIVE: CASE EVENT DATE: 2020
